FAERS Safety Report 4424223-0 (Version None)
Quarter: 2004Q3

REPORT INFORMATION
  Report Type: 
  Country: None (occurrence: None)
  Receive Date: 20040809
  Receipt Date: 20040730
  Transmission Date: 20050211
  Serious: Yes (Hospitalization)
  Sender: FDA-Public Use
  Company Number: 2004PK01299

PATIENT
  Age: 90 Year
  Sex: Female
  Weight: 54.8 kg

DRUGS (7)
  1. METOPROLOL SUCCINATE [Suspect]
     Indication: HYPERTENSION
     Dosage: 47.5 MG BID PO
     Route: 048
     Dates: start: 20030801, end: 20040405
  2. METOPROLOL SUCCINATE [Suspect]
     Indication: HYPERTENSION
     Dosage: 47.5 MG DAILY PO
     Route: 048
     Dates: start: 20040408
  3. DIGITOXIN TAB [Suspect]
     Indication: ATRIAL FIBRILLATION
     Dosage: 0.07 MG DAILY PO
     Route: 047
     Dates: start: 20030801, end: 20040405
  4. INSULIN ACTRAPHANE [Concomitant]
  5. ALDACTONE [Concomitant]
  6. ASPIRIN [Concomitant]
  7. TOREM [Concomitant]

REACTIONS (2)
  - BRADYCARDIA [None]
  - DRUG INTERACTION [None]
